FAERS Safety Report 6842351-7 (Version None)
Quarter: 2010Q3

REPORT INFORMATION
  Report Type: 
  Country: None (occurrence: None)
  Receive Date: 20100709
  Receipt Date: 20100630
  Transmission Date: 20110219
  Serious: Yes (Hospitalization)
  Sender: FDA-Public Use
  Company Number: 003418

PATIENT
  Sex: Male
  Weight: 104 kg

DRUGS (6)
  1. CERTOLIZUMAB PEGOL (CERTOLIZUMAB PEGOL) [Suspect]
     Indication: RHEUMATOID ARTHRITIS
     Dosage: (200 MG 1X/2 WEEKS, STUDY CDP870-027 SUBCUTANEOUS), (400 MG 1X2 WEEKS SUBCUTANEOUS)
     Route: 058
     Dates: start: 20050412, end: 20060527
  2. CERTOLIZUMAB PEGOL (CERTOLIZUMAB PEGOL) [Suspect]
     Indication: RHEUMATOID ARTHRITIS
     Dosage: (200 MG 1X/2 WEEKS, STUDY CDP870-027 SUBCUTANEOUS), (400 MG 1X2 WEEKS SUBCUTANEOUS)
     Route: 058
     Dates: start: 20060411
  3. MELOXICAM [Concomitant]
  4. METHOTREXATE [Concomitant]
  5. SILYMARIN [Concomitant]
  6. RHEFLUIN [Concomitant]

REACTIONS (3)
  - CALCULUS URETERIC [None]
  - HAEMANGIOMA [None]
  - VOCAL CORD DISORDER [None]
